FAERS Safety Report 20150301 (Version 1)
Quarter: 2021Q4

REPORT INFORMATION
  Report Type: Report from Study
  Country: CA (occurrence: CA)
  Receive Date: 20211206
  Receipt Date: 20211206
  Transmission Date: 20220303
  Serious: Yes (Other)
  Sender: FDA-Public Use
  Company Number: CA-BAUSCH-BL-2018-025392

PATIENT
  Age: 44 Year
  Sex: Male

DRUGS (4)
  1. SILIQ [Suspect]
     Active Substance: BRODALUMAB
     Indication: Psoriasis
     Dosage: 210MG/ 1.5 ML, WEEKLY FOR WEEK 0, 1 AND 2 AND TWICE A WEEK THEREAFTER
     Route: 058
     Dates: start: 20180820, end: 201809
  2. SILIQ [Suspect]
     Active Substance: BRODALUMAB
     Dosage: 210MG/ 1.5 ML
     Route: 058
     Dates: start: 2018
  3. SILIQ [Suspect]
     Active Substance: BRODALUMAB
     Dosage: 210MG/ 1.5 ML
     Route: 058
     Dates: start: 2019
  4. LIPITOR [Concomitant]
     Active Substance: ATORVASTATIN CALCIUM
     Indication: Product used for unknown indication
     Route: 065

REACTIONS (15)
  - Vasectomy [Unknown]
  - Psoriasis [Recovered/Resolved]
  - Blood pressure abnormal [Recovering/Resolving]
  - Stress [Not Recovered/Not Resolved]
  - Anxiety [Recovered/Resolved]
  - Joint range of motion decreased [Recovered/Resolved]
  - Musculoskeletal discomfort [Recovered/Resolved]
  - Paraesthesia [Recovering/Resolving]
  - Nerve compression [Recovering/Resolving]
  - Hypoaesthesia [Recovering/Resolving]
  - Myalgia [Recovered/Resolved]
  - Headache [Recovered/Resolved]
  - Arthralgia [Recovered/Resolved]
  - Patient dissatisfaction with treatment [Unknown]
  - Off label use [Unknown]

NARRATIVE: CASE EVENT DATE: 20180801
